FAERS Safety Report 22027996 (Version 3)
Quarter: 2023Q4

REPORT INFORMATION
  Report Type: Report from Study
  Country: US (occurrence: US)
  Receive Date: 20230223
  Receipt Date: 20231201
  Transmission Date: 20240109
  Serious: Yes (Hospitalization, Other)
  Sender: FDA-Public Use
  Company Number: US-ABBVIE-4313920

PATIENT
  Age: 56 Year
  Sex: Female

DRUGS (5)
  1. RINVOQ [Suspect]
     Active Substance: UPADACITINIB
     Indication: Rheumatoid arthritis
     Dosage: STRENGTH 15 MG
     Route: 048
     Dates: start: 20220716
  2. RINVOQ [Suspect]
     Active Substance: UPADACITINIB
     Indication: Rheumatoid arthritis
     Dosage: STRENGTH 15 MG?STOP: 2023
     Route: 048
     Dates: start: 202308
  3. RINVOQ [Suspect]
     Active Substance: UPADACITINIB
     Indication: Rheumatoid arthritis
     Dosage: STRENGTH: 15 MG?START: 2023
     Route: 048
  4. DOXYCYCLINE [Concomitant]
     Active Substance: DOXYCYCLINE
     Indication: Product used for unknown indication
  5. GABAPENTIN [Concomitant]
     Active Substance: GABAPENTIN
     Indication: Product used for unknown indication

REACTIONS (23)
  - Aortic aneurysm [Unknown]
  - Hiatus hernia [Unknown]
  - Arthralgia [Recovered/Resolved]
  - Night sweats [Unknown]
  - Pneumonia [Recovered/Resolved]
  - Paranasal sinus hypersecretion [Unknown]
  - Arthralgia [Unknown]
  - Asthenia [Unknown]
  - Joint range of motion decreased [Unknown]
  - Chronic sinusitis [Unknown]
  - Shoulder fracture [Unknown]
  - Drug ineffective [Unknown]
  - Fall [Unknown]
  - Blood folate decreased [Unknown]
  - Joint dislocation [Unknown]
  - Infection [Recovering/Resolving]
  - Blood potassium decreased [Unknown]
  - Balance disorder [Unknown]
  - Nasal septum deviation [Unknown]
  - Vitamin B12 decreased [Unknown]
  - Dental care [Unknown]
  - Fatigue [Unknown]
  - Musculoskeletal stiffness [Unknown]

NARRATIVE: CASE EVENT DATE: 20221201
